FAERS Safety Report 6632752-4 (Version None)
Quarter: 2010Q1

REPORT INFORMATION
  Report Type: 
  Country: None (occurrence: None)
  Receive Date: 20100312
  Receipt Date: 20100309
  Transmission Date: 20100710
  Serious: Yes (Other)
  Sender: FDA-Public Use
  Company Number: US-BAYER-201012938BCC

PATIENT
  Age: 59 Year
  Sex: Male
  Weight: 136 kg

DRUGS (2)
  1. ALEVE (CAPLET) [Suspect]
     Indication: ARTHRALGIA
     Dosage: TOTAL DAILY DOSE: 1320 MG  UNIT DOSE: 220 MG
     Route: 048
     Dates: end: 20091201
  2. ONE A DAY VITAMINS [Concomitant]
     Route: 065

REACTIONS (1)
  - GASTRIC HAEMORRHAGE [None]
